FAERS Safety Report 8801203 (Version 1)
Quarter: 2012Q4

REPORT INFORMATION
  Report Type: Report from Study
  Country: GB (occurrence: GB)
  Receive Date: 20120920
  Receipt Date: 20120920
  Transmission Date: 20130627
  Serious: Yes (Other)
  Sender: FDA-Public Use
  Company Number: GB-ROCHE-1131716

PATIENT
  Age: 52 Year
  Sex: Female

DRUGS (3)
  1. MABTHERA [Suspect]
     Indication: RHEUMATOID ARTHRITIS
     Route: 065
     Dates: start: 20070821, end: 20110822
  2. ANASTROZOLE [Concomitant]
  3. CLONIDINE [Concomitant]

REACTIONS (1)
  - Breast cancer [Not Recovered/Not Resolved]
